FAERS Safety Report 7648993-3 (Version None)
Quarter: 2011Q3

REPORT INFORMATION
  Report Type: 
  Country: None (occurrence: None)
  Receive Date: 20110802
  Receipt Date: 20110726
  Transmission Date: 20111222
  Serious: Yes (Hospitalization, Other)
  Sender: FDA-Public Use
  Company Number: US-BIOGENIDEC-2011BI020706

PATIENT
  Sex: Female

DRUGS (8)
  1. GABAPENTIN [Concomitant]
  2. VITAMIN D [Concomitant]
  3. AVONEX [Suspect]
     Route: 030
  4. SIMVASTATIN [Concomitant]
  5. LUNESTA [Concomitant]
  6. CLONAZEPAM [Concomitant]
  7. AVONEX [Suspect]
     Indication: MULTIPLE SCLEROSIS
     Route: 030
     Dates: start: 20100901
  8. CELEXA [Concomitant]

REACTIONS (5)
  - GASTROINTESTINAL NECROSIS [None]
  - GASTROINTESTINAL INJURY [None]
  - LARGE INTESTINE PERFORATION [None]
  - GASTROINTESTINAL MALFORMATION [None]
  - HAEMOGLOBIN DECREASED [None]
